FAERS Safety Report 15743473 (Version 1)
Quarter: 2018Q4

REPORT INFORMATION
  Report Type: Spontaneous
  Country: FR (occurrence: FR)
  Receive Date: 20181220
  Receipt Date: 20181220
  Transmission Date: 20190205
  Serious: Yes (Other)
  Sender: FDA-Public Use
  Company Number: FR-TEVA-2018-FR-988815

PATIENT
  Age: 60 Year
  Sex: Male
  Weight: 100 kg

DRUGS (14)
  1. ZAMUDOL L.P. 100 MG, EXTENDED RELEASE CAPSULE [Suspect]
     Active Substance: TRAMADOL HYDROCHLORIDE
     Indication: PRODUCT USED FOR UNKNOWN INDICATION
     Dosage: 200 MILLIGRAM DAILY; EXTENDED RELEASE CAPSULE
     Route: 048
     Dates: end: 20181115
  2. ALEPSAL 100 MG, TABLET [Concomitant]
     Dosage: 200 MILLIGRAM DAILY;
     Route: 048
  3. LAMICTAL 200 MG, TABLET [Concomitant]
     Dosage: 1600 MILLIGRAM DAILY;
     Route: 048
  4. DALACINE [Concomitant]
     Active Substance: CLINDAMYCIN
     Dosage: 12 GRAM DAILY;
     Dates: start: 20180913, end: 20181018
  5. LOVENOX 10 000 IU ANTI-XA/1 ML, INJECTABLE SOLUTION (S.I.) IN AMPOULE [Concomitant]
     Dosage: 9000 IU (INTERNATIONAL UNIT) DAILY;
     Route: 058
  6. TAZOCILLINE [Suspect]
     Active Substance: PIPERACILLIN SODIUM\TAZOBACTAM SODIUM
     Indication: INFECTION
     Dates: start: 20180913, end: 20181115
  7. ECONAZOLE ARROW 1%, POWDER FOR SKIN APPLICATION [Concomitant]
     Dosage: POWDER FOR SKIN APPLICATION
  8. EPITOMAX 100 MG, COATED TABLET [Concomitant]
     Dosage: 300 MILLIGRAM DAILY;
     Route: 048
  9. LEVOFLOXACINE [Suspect]
     Active Substance: LEVOFLOXACIN
     Indication: INFECTION
     Dates: start: 20180829, end: 20181108
  10. CUBICIN [Suspect]
     Active Substance: DAPTOMYCIN
     Indication: INFECTION
     Dosage: 2100 MILLIGRAM DAILY;
     Route: 042
     Dates: start: 20181019, end: 20181115
  11. BACTRIM [Suspect]
     Active Substance: SULFAMETHOXAZOLE\TRIMETHOPRIM
     Indication: INFECTION
     Route: 048
     Dates: start: 20181108
  12. URBANYL 20 MG, TABLET [Concomitant]
     Dosage: 40 MILLIGRAM DAILY;
     Route: 048
  13. AERIUS 5 MG, COATED TABLET [Concomitant]
     Dosage: 5 MILLIGRAM DAILY;
     Route: 048
  14. PANTOPRAZOLE SODIUM. [Concomitant]
     Active Substance: PANTOPRAZOLE SODIUM
     Dosage: 20 MILLIGRAM DAILY;
     Route: 048

REACTIONS (2)
  - Essential tremor [Unknown]
  - Speech disorder [Unknown]

NARRATIVE: CASE EVENT DATE: 201810
